FAERS Safety Report 8139858-1 (Version None)
Quarter: 2012Q1

REPORT INFORMATION
  Report Type: 
  Country: None (occurrence: None)
  Receive Date: 20120215
  Receipt Date: 20120126
  Transmission Date: 20120608
  Serious: Yes (Hospitalization, Other)
  Sender: FDA-Public Use
  Company Number: SE-ABBOTT-11P-150-0876770-00

PATIENT
  Sex: Female

DRUGS (17)
  1. INSULIN [Concomitant]
     Indication: DIABETES MELLITUS
     Route: 058
  2. BISOPROLOL FUMARATE [Concomitant]
     Indication: PRODUCT USED FOR UNKNOWN INDICATION
     Dosage: 1 TABLET AT 08.00 DAILY
     Route: 048
  3. SIMVASTATIN [Concomitant]
     Indication: LIPIDS INCREASED
     Dosage: 1.5 TABLETS AT 08.00 DAILY
     Route: 048
  4. GABAPENTIN [Concomitant]
     Indication: PRODUCT USED FOR UNKNOWN INDICATION
     Dosage: 0.5 TABLETS WHEN NEEDED
     Route: 048
  5. CITALOPRAM HYDROBROMIDE [Concomitant]
     Indication: PRODUCT USED FOR UNKNOWN INDICATION
     Dosage: 1 TABLET AT 08.00 DAILY
     Route: 048
  6. CEFOTAXIM [Concomitant]
     Indication: PRODUCT USED FOR UNKNOWN INDICATION
     Dates: start: 20110901
  7. STERCULIA GUM [Concomitant]
     Indication: PRODUCT USED FOR UNKNOWN INDICATION
     Dosage: 1 SACHET AT 08.00 DAILY
     Route: 048
  8. LACTULOSE [Concomitant]
     Indication: PRODUCT USED FOR UNKNOWN INDICATION
     Dosage: 20ML AT 08.00 DAILY
  9. CLOPIDOGREL [Concomitant]
     Indication: PRODUCT USED FOR UNKNOWN INDICATION
     Dosage: 1 TABLET AT 08.00 DAILY
     Route: 048
  10. FUROSEMIDE [Concomitant]
     Indication: DIURETIC THERAPY
     Dosage: 1 TABLET AT 08.00 DAILY
     Route: 048
  11. PROPIOMAZINE [Concomitant]
     Indication: PRODUCT USED FOR UNKNOWN INDICATION
     Dosage: 1 TO THE NIGHT DAILY
     Route: 048
  12. DIMETICON [Concomitant]
     Indication: FLATULENCE
     Dosage: 1 CAPSULE WHEN NEEDED
     Route: 048
  13. ALENDRONATE SODIUM [Concomitant]
     Indication: PRODUCT USED FOR UNKNOWN INDICATION
     Dosage: ONCE A WEEK ON THURSDAYS
     Route: 048
  14. LANTUS [Concomitant]
     Indication: DIABETES MELLITUS
     Dosage: 12 UNITS AT 08.00 DAILY
     Route: 058
  15. CALCIUM CARBONATE [Concomitant]
     Indication: PRODUCT USED FOR UNKNOWN INDICATION
     Dosage: 2 CHEWING TABLETS AT 08.00 DAILY
     Route: 048
  16. ZEMPLAR [Suspect]
     Indication: RENAL FAILURE CHRONIC
     Dosage: 1 CAPSULE AT 08.00 DAILY
     Route: 048
     Dates: start: 20110323
  17. LANSOPRAZOLE [Concomitant]
     Indication: PRODUCT USED FOR UNKNOWN INDICATION
     Dosage: 1 CAPSULE AT 08.00 DAILY
     Route: 048

REACTIONS (12)
  - ATAXIA [None]
  - HEMIPARESIS [None]
  - COGNITIVE DISORDER [None]
  - BLOOD GLUCOSE FLUCTUATION [None]
  - VIITH NERVE PARALYSIS [None]
  - MOBILITY DECREASED [None]
  - DIZZINESS [None]
  - ASTHENIA [None]
  - COORDINATION ABNORMAL [None]
  - CEREBROVASCULAR DISORDER [None]
  - MEMORY IMPAIRMENT [None]
  - DYSARTHRIA [None]
